FAERS Safety Report 10596753 (Version 2)
Quarter: 2014Q4

REPORT INFORMATION
  Report Type: Spontaneous
  Country: CA (occurrence: CA)
  Receive Date: 20141120
  Receipt Date: 20141202
  Transmission Date: 20150529
  Serious: Yes (Other)
  Sender: FDA-Public Use
  Company Number: CA-GE HEALTHCARE MEDICAL DIAGNOSTICS-VISP-PR-1411S-0509

PATIENT
  Age: 48 Year
  Sex: Female

DRUGS (4)
  1. VISIPAQUE [Suspect]
     Active Substance: IODIXANOL
     Indication: DIAGNOSTIC PROCEDURE
  2. VISIPAQUE [Suspect]
     Active Substance: IODIXANOL
     Indication: WEIGHT DECREASED
  3. VISIPAQUE [Suspect]
     Active Substance: IODIXANOL
     Indication: RENAL MASS
     Route: 042
     Dates: start: 20141113, end: 20141113
  4. VISIPAQUE [Suspect]
     Active Substance: IODIXANOL
     Indication: DECREASED APPETITE

REACTIONS (3)
  - Pruritus [Unknown]
  - Throat irritation [Unknown]
  - Urticaria [Recovered/Resolved]

NARRATIVE: CASE EVENT DATE: 20141113
